FAERS Safety Report 7707732-8 (Version None)
Quarter: 2011Q3

REPORT INFORMATION
  Report Type: 
  Country: None (occurrence: None)
  Receive Date: 20110824
  Receipt Date: 20110815
  Transmission Date: 20111222
  Serious: Yes (Hospitalization)
  Sender: FDA-Public Use
  Company Number: US-ASTRAZENECA-2010SE46443

PATIENT
  Sex: Female

DRUGS (20)
  1. COLCHICINE [Concomitant]
     Dosage: 0.6 EVERY OTHER DAY
  2. ASPIRIN [Concomitant]
  3. BENAZEPRIL HYDROCHLORIDE [Concomitant]
  4. AMITRIPTYLINE HCL [Concomitant]
  5. NEXIUM [Suspect]
     Route: 048
  6. KLOR-CON [Concomitant]
  7. AMLODIPINE [Concomitant]
  8. FOLIC ACID [Suspect]
  9. PREDNISONE [Concomitant]
  10. FUROSEMIDE [Concomitant]
  11. TEMAZEPAM [Concomitant]
  12. PRILOSEC [Suspect]
     Route: 048
  13. DIOVAN [Concomitant]
  14. CYPROHEPTAD [Concomitant]
  15. METOPROLOL [Suspect]
     Route: 048
  16. FLUOXETINE [Concomitant]
  17. CLONAZEPAM [Concomitant]
  18. CLONIDINE [Concomitant]
  19. ALPRAZOLAM [Concomitant]
  20. ASPIRIN [Concomitant]

REACTIONS (2)
  - CARDIAC FAILURE CONGESTIVE [None]
  - DRUG EFFECT DECREASED [None]
